FAERS Safety Report 16336335 (Version 1)
Quarter: 2019Q2

REPORT INFORMATION
  Report Type: Spontaneous
  Country: US (occurrence: US)
  Receive Date: 20190521
  Receipt Date: 20190521
  Transmission Date: 20190711
  Serious: Yes (Hospitalization, Other)
  Sender: FDA-Public Use
  Company Number: US-AUROBINDO-AUR-APL-2019-028759

PATIENT

DRUGS (1)
  1. PREDNISONE. [Suspect]
     Active Substance: PREDNISONE
     Indication: SARCOIDOSIS
     Dosage: 20 MILLIGRAM PER DAY
     Route: 065

REACTIONS (9)
  - Loss of personal independence in daily activities [Recovering/Resolving]
  - Fatigue [Recovering/Resolving]
  - Lethargy [Recovering/Resolving]
  - Meningitis cryptococcal [Recovering/Resolving]
  - Fall [Recovering/Resolving]
  - Headache [Recovered/Resolved]
  - Mental status changes [Recovered/Resolved]
  - Vision blurred [Recovering/Resolving]
  - Confusional state [Recovering/Resolving]
